FAERS Safety Report 8437293-X (Version None)
Quarter: 2012Q2

REPORT INFORMATION
  Report Type: 
  Country: None (occurrence: None)
  Receive Date: 20120614
  Receipt Date: 20120302
  Transmission Date: 20120825
  Serious: No
  Sender: FDA-Public Use
  Company Number: US-AMGEN-USASP2012014226

PATIENT
  Age: 74 Year
  Sex: Female

DRUGS (9)
  1. COUMADIN [Concomitant]
     Dosage: UNK
  2. DIGOXIN [Concomitant]
     Dosage: UNK
  3. ACIDOPHILUS [Concomitant]
     Dosage: UNK
  4. PROLIA [Suspect]
     Indication: OSTEOPOROSIS POSTMENOPAUSAL
     Dosage: 60 MG, Q6MO
     Dates: start: 20110301
  5. CALTRATE WITH VITAMIN D [Concomitant]
     Dosage: UNK
  6. CIMETIDINE [Concomitant]
     Dosage: UNK
  7. ZETIA [Concomitant]
     Dosage: UNK
  8. LOVAZA [Concomitant]
     Dosage: UNK
  9. SYNTHROID [Concomitant]
     Dosage: UNK

REACTIONS (8)
  - POLLAKIURIA [None]
  - GALLBLADDER DISORDER [None]
  - BLOOD URINE PRESENT [None]
  - BACK PAIN [None]
  - PAIN [None]
  - DYSURIA [None]
  - IRRITABLE BOWEL SYNDROME [None]
  - PAIN IN EXTREMITY [None]
